FAERS Safety Report 13274714 (Version 1)
Quarter: 2017Q1

REPORT INFORMATION
  Report Type: Spontaneous
  Country: KR (occurrence: KR)
  Receive Date: 20170227
  Receipt Date: 20170227
  Transmission Date: 20170428
  Serious: Yes (Hospitalization, Other)
  Sender: FDA-Public Use
  Company Number: KR-009507513-1702KOR010291

PATIENT
  Age: 63 Year
  Sex: Male
  Weight: 73.7 kg

DRUGS (20)
  1. EMEND (FOSAPREPITANT DIMEGLUMINE) [Suspect]
     Active Substance: FOSAPREPITANT DIMEGLUMINE
     Indication: PROPHYLAXIS OF NAUSEA AND VOMITING
     Dosage: 150 MG, ONCE
     Route: 042
     Dates: start: 20161208, end: 20161208
  2. LASTET [Concomitant]
     Active Substance: ETOPOSIDE
     Indication: SMALL CELL LUNG CANCER
     Dosage: 183 MG, QD CYCLE 1
     Route: 042
     Dates: start: 20161208, end: 20161210
  3. DEXAMETHASONE YUHAN [Concomitant]
     Indication: PROPHYLAXIS OF NAUSEA AND VOMITING
     Dosage: 12 MG, ONCE
     Route: 042
     Dates: start: 20161208, end: 20161208
  4. CURAN [Concomitant]
     Active Substance: RANITIDINE HYDROCHLORIDE
     Indication: PROPHYLAXIS
     Dosage: 50 MG, ONCE
     Dates: start: 20161208, end: 20161208
  5. CHLORPHENIRAMINE MALEATE HUONS [Concomitant]
     Indication: PROPHYLAXIS
     Dosage: 2 MG, ONCE
     Dates: start: 20161210, end: 20161210
  6. ATORVATIN [Concomitant]
     Dosage: 10 MG, QD
     Route: 048
     Dates: start: 2006
  7. LASIX [Concomitant]
     Active Substance: FUROSEMIDE
     Indication: PROPHYLAXIS
     Dosage: 20 MG, ONCE
     Route: 042
     Dates: start: 20161208, end: 20161208
  8. CISPLAN [Concomitant]
     Active Substance: CISPLATIN
     Indication: SMALL CELL LUNG CANCER
     Dosage: 128 MG, ONCE, CYCLE 1
     Route: 042
     Dates: start: 20161208, end: 20161208
  9. DEXAMETHASONE YUHAN [Concomitant]
     Indication: PROPHYLAXIS OF NAUSEA AND VOMITING
     Dosage: 4 MG, BID
     Route: 048
     Dates: start: 20161209, end: 20161211
  10. EMEND (FOSAPREPITANT DIMEGLUMINE) [Suspect]
     Active Substance: FOSAPREPITANT DIMEGLUMINE
     Dosage: 150 MG, ONCE
     Route: 042
     Dates: start: 20170118, end: 20170118
  11. CODENAL (CHLORPHENIRAMINE MALEATE (+) DIHYDROCODEINE BITARTRATE (+) GU [Concomitant]
     Indication: COUGH
     Dosage: 15 ML, TID
     Route: 048
     Dates: start: 20161208, end: 20161227
  12. DUPHALAC  EASY [Concomitant]
     Indication: CONSTIPATION
     Dosage: 15 ML, BID
     Route: 048
     Dates: start: 20161208
  13. MYPOL [Concomitant]
     Indication: CANCER PAIN
     Dosage: 1 CAPSULE, TID
     Route: 042
     Dates: start: 20161205, end: 20161227
  14. NEXIUM [Concomitant]
     Active Substance: ESOMEPRAZOLE MAGNESIUM
     Indication: PROPHYLAXIS
     Dosage: 20 MG, QD
     Route: 048
     Dates: start: 20161210, end: 20161227
  15. COSAROTAN PLUS [Concomitant]
     Indication: HYPERTENSION
     Dosage: 1 DF, QD
     Route: 048
     Dates: start: 2006
  16. EMEND (FOSAPREPITANT DIMEGLUMINE) [Suspect]
     Active Substance: FOSAPREPITANT DIMEGLUMINE
     Dosage: 150 MG, ONCE
     Route: 042
     Dates: start: 20161228, end: 20161228
  17. CENTRUM ADVANCE [Concomitant]
     Active Substance: VITAMINS
     Indication: ROUTINE HEALTH MAINTENANCE
     Dosage: 1 DF, QD
     Route: 048
     Dates: start: 20161208
  18. SANCUSO [Concomitant]
     Active Substance: GRANISETRON
     Indication: PROPHYLAXIS OF NAUSEA AND VOMITING
     Dosage: 1 PATCH, QD
     Route: 003
     Dates: start: 20161207, end: 20161213
  19. TAZIM [Concomitant]
     Indication: PNEUMONITIS
     Dosage: 2 G, TID
     Route: 042
     Dates: start: 20161207, end: 20161212
  20. EMEND (FOSAPREPITANT DIMEGLUMINE) [Suspect]
     Active Substance: FOSAPREPITANT DIMEGLUMINE
     Dosage: 150 MG, ONCE
     Route: 042
     Dates: start: 20170208, end: 20170208

REACTIONS (11)
  - Musculoskeletal pain [Unknown]
  - Hiccups [Recovered/Resolved]
  - Gastrooesophageal reflux disease [Recovered/Resolved]
  - Hypoaesthesia [Recovered/Resolved]
  - Chest pain [Recovered/Resolved]
  - Neutropenia [Recovered/Resolved]
  - Neutropenia [Recovered/Resolved]
  - Abdominal discomfort [Recovered/Resolved]
  - Nausea [Recovered/Resolved]
  - Vomiting [Recovered/Resolved]
  - Dyspepsia [Recovered/Resolved]

NARRATIVE: CASE EVENT DATE: 20161209
